FAERS Safety Report 7733699-2 (Version None)
Quarter: 2011Q3

REPORT INFORMATION
  Report Type: 
  Country: None (occurrence: None)
  Receive Date: 20110902
  Receipt Date: 20110902
  Transmission Date: 20111222
  Serious: Yes (Life-Threatening, Other)
  Sender: FDA-Public Use
  Company Number: None

PATIENT
  Age: 57 Year
  Sex: Female
  Weight: 70.3075 kg

DRUGS (5)
  1. ATRIPLA [Suspect]
     Indication: HIV INFECTION
     Dosage: 1 TABLET DAILY AT BEDTIME
     Dates: start: 20090701, end: 20110601
  2. ATRIPLA [Suspect]
     Indication: ACQUIRED IMMUNODEFICIENCY SYNDROME
     Dosage: 1 TABLET DAILY AT BEDTIME
     Dates: start: 20090701, end: 20110601
  3. EFAVIRENZ [Suspect]
  4. TENOFOVIR DISOPROXIL FUMARATE [Suspect]
  5. EMTRICITABINE [Suspect]

REACTIONS (6)
  - VOMITING [None]
  - MALAISE [None]
  - NAUSEA [None]
  - BLOOD PRESSURE INCREASED [None]
  - ABDOMINAL PAIN [None]
  - DIARRHOEA [None]
